FAERS Safety Report 7121281-X (Version None)
Quarter: 2010Q4

REPORT INFORMATION
  Report Type: 
  Country: None (occurrence: None)
  Receive Date: 20101122
  Receipt Date: 20101122
  Transmission Date: 20110411
  Serious: Yes (Hospitalization)
  Sender: FDA-Public Use
  Company Number: None

PATIENT
  Sex: Male
  Weight: 102.9 kg

DRUGS (13)
  1. ALIMTA [Suspect]
     Indication: NON-SMALL CELL LUNG CANCER
     Dosage: 500 Q3 WEEKS IV
     Route: 042
     Dates: start: 20100707
  2. ALIMTA [Suspect]
     Indication: NON-SMALL CELL LUNG CANCER
     Dosage: 500 Q3 WEEKS IV
     Route: 042
     Dates: start: 20100729
  3. ALIMTA [Suspect]
     Indication: NON-SMALL CELL LUNG CANCER
     Dosage: 500 Q3 WEEKS IV
     Route: 042
     Dates: start: 20100823
  4. ALIMTA [Suspect]
     Indication: NON-SMALL CELL LUNG CANCER
     Dosage: 500 Q3 WEEKS IV
     Route: 042
     Dates: start: 20100913
  5. ALIMTA [Suspect]
     Indication: NON-SMALL CELL LUNG CANCER
     Dosage: 500 Q3 WEEKS IV
     Route: 042
     Dates: start: 20101004
  6. ALIMTA [Suspect]
     Indication: NON-SMALL CELL LUNG CANCER
     Dosage: 500 Q3 WEEKS IV
     Route: 042
     Dates: start: 20101110
  7. CISPLATIN [Suspect]
     Indication: NON-SMALL CELL LUNG CANCER
     Dosage: 75 Q3 WEEKS IV
     Route: 042
     Dates: start: 20100704
  8. CISPLATIN [Suspect]
     Indication: NON-SMALL CELL LUNG CANCER
     Dosage: 75 Q3 WEEKS IV
     Route: 042
     Dates: start: 20100729
  9. CISPLATIN [Suspect]
     Indication: NON-SMALL CELL LUNG CANCER
     Dosage: 75 Q3 WEEKS IV
     Route: 042
     Dates: start: 20100823
  10. CISPLATIN [Suspect]
     Indication: NON-SMALL CELL LUNG CANCER
     Dosage: 75 Q3 WEEKS IV
     Route: 042
     Dates: start: 20100913
  11. CISPLATIN [Suspect]
     Indication: NON-SMALL CELL LUNG CANCER
     Dosage: 75 Q3 WEEKS IV
     Route: 042
     Dates: start: 20101004
  12. CISPLATIN [Suspect]
     Indication: NON-SMALL CELL LUNG CANCER
     Dosage: 75 Q3 WEEKS IV
     Route: 042
     Dates: start: 20101110
  13. SEE IMAGE [Concomitant]

REACTIONS (6)
  - ASTHENIA [None]
  - BLOOD CREATININE INCREASED [None]
  - BLOOD UREA INCREASED [None]
  - DECREASED APPETITE [None]
  - DEHYDRATION [None]
  - RENAL IMPAIRMENT [None]
